FAERS Safety Report 8744331 (Version 3)
Quarter: 2013Q4

REPORT INFORMATION
  Report Type: Spontaneous
  Country: US (occurrence: US)
  Receive Date: 20120825
  Receipt Date: 20131101
  Transmission Date: 20140711
  Serious: No
  Sender: FDA-Public Use
  Company Number: US-009507513-1208USA001227

PATIENT
  Age: 72 Year
  Sex: Male
  Weight: 76.19 kg

DRUGS (1)
  1. DULERA [Suspect]
     Indication: ASTHMA
     Dosage: 100/5 MCG TWICE DAILY, DULERA INHALER 100/5
     Route: 045
     Dates: start: 201207

REACTIONS (1)
  - Dysphonia [Not Recovered/Not Resolved]
